FAERS Safety Report 5604543-4 (Version None)
Quarter: 2008Q1

REPORT INFORMATION
  Report Type: 
  Country: None (occurrence: None)
  Receive Date: 20080128
  Receipt Date: 20080118
  Transmission Date: 20080703
  Serious: Yes (Hospitalization)
  Sender: FDA-Public Use
  Company Number: LT-ABBOTT-08P-234-0434335-00

PATIENT
  Age: 61 Year
  Sex: Female
  Weight: 70 kg

DRUGS (7)
  1. TARKA [Suspect]
     Indication: ATRIAL FIBRILLATION
     Route: 048
     Dates: start: 20070901, end: 20071212
  2. TARKA [Suspect]
     Indication: SICK SINUS SYNDROME
  3. DIGOXIN [Suspect]
     Indication: ATRIAL FIBRILLATION
     Route: 048
     Dates: start: 20070901, end: 20071212
  4. DIGOXIN [Suspect]
     Indication: SICK SINUS SYNDROME
  5. SPIRONOLACTONE [Concomitant]
     Indication: CARDIAC FAILURE
     Route: 048
     Dates: start: 20070801
  6. TORSEMIDE [Concomitant]
     Indication: CARDIAC FAILURE
     Route: 048
     Dates: start: 20070801
  7. WARFARIN SODIUM [Concomitant]
     Indication: ATRIAL FIBRILLATION
     Route: 048
     Dates: start: 20070801

REACTIONS (2)
  - ALTERED STATE OF CONSCIOUSNESS [None]
  - BRADYARRHYTHMIA [None]
